FAERS Safety Report 8613764 (Version 5)
Quarter: 2014Q2

REPORT INFORMATION
  Report Type: Spontaneous
  Country: US (occurrence: US)
  Receive Date: 20120614
  Receipt Date: 20140522
  Transmission Date: 20141212
  Serious: Yes (Hospitalization, Disabling)
  Sender: FDA-Public Use
  Company Number: US-ASTRAZENECA-2012SE36213

PATIENT
  Age: 617 Month
  Sex: Female

DRUGS (17)
  1. NEXIUM [Suspect]
     Indication: GASTROOESOPHAGEAL REFLUX DISEASE
     Dosage: ONCE A DAY
     Route: 048
  2. NEXIUM [Suspect]
     Indication: GASTROOESOPHAGEAL REFLUX DISEASE
     Route: 048
     Dates: start: 20021202
  3. NEXIUM [Suspect]
     Indication: GASTROOESOPHAGEAL REFLUX DISEASE
     Route: 048
     Dates: start: 20121203
  4. PRILOSEC [Suspect]
     Route: 048
  5. PRILOSEC [Suspect]
     Route: 048
     Dates: start: 20000816
  6. ACIPHEX [Concomitant]
     Indication: GASTROOESOPHAGEAL REFLUX DISEASE
     Dates: start: 20000914
  7. TUMS [Concomitant]
  8. MYLANTA [Concomitant]
  9. ROLAIDS [Concomitant]
  10. LANSOPRAZOLE [Concomitant]
     Indication: GASTROOESOPHAGEAL REFLUX DISEASE
  11. ESTRADIOL [Concomitant]
     Indication: MENOPAUSE
     Dates: start: 20050222
  12. PREMARIN [Concomitant]
     Indication: MENOPAUSE
  13. DITIZAM [Concomitant]
     Indication: HYPERTENSION
  14. CARVEDILOL [Concomitant]
     Indication: HYPERTENSION
  15. SIMVASTATIN [Concomitant]
     Indication: BLOOD CHOLESTEROL ABNORMAL
  16. NEURONTIN [Concomitant]
     Dosage: 100 TO 400 MG
     Dates: start: 20030216
  17. EVISTA [Concomitant]
     Dates: start: 20090622

REACTIONS (8)
  - Radius fracture [Unknown]
  - Upper limb fracture [Unknown]
  - Atrial fibrillation [Unknown]
  - Vertigo [Unknown]
  - Fall [Unknown]
  - Osteoporosis [Unknown]
  - Multiple fractures [Unknown]
  - Osteopenia [Unknown]
